FAERS Safety Report 20528873 (Version 1)
Quarter: 2022Q1

REPORT INFORMATION
  Report Type: Spontaneous
  Country: US (occurrence: US)
  Receive Date: 20220228
  Receipt Date: 20220228
  Transmission Date: 20220423
  Serious: No
  Sender: FDA-Public Use
  Company Number: US-Cardinal Health 414-NPHS-AE-22-2

PATIENT
  Age: 84 Year
  Sex: Male

DRUGS (1)
  1. TECHNETIUM TC-99M MEDRONATE KIT [Suspect]
     Active Substance: TECHNETIUM TC-99M MEDRONATE
     Indication: Bone scan
     Route: 042
     Dates: start: 20220114, end: 20220114

REACTIONS (1)
  - Rash [Recovered/Resolved]

NARRATIVE: CASE EVENT DATE: 20220114
